FAERS Safety Report 15396133 (Version 4)
Quarter: 2022Q1

REPORT INFORMATION
  Report Type: Spontaneous
  Country: GR (occurrence: GR)
  Receive Date: 20180918
  Receipt Date: 20220203
  Transmission Date: 20220423
  Serious: Yes (Disabling, Other)
  Sender: FDA-Public Use
  Company Number: GR-BAYER-2018-171956

PATIENT
  Age: 39 Year
  Sex: Female
  Weight: 60 kg

DRUGS (3)
  1. MOXIFLOXACIN [Suspect]
     Active Substance: MOXIFLOXACIN
     Indication: Acute sinusitis
     Dosage: 400 MG, QD
     Route: 048
     Dates: start: 20180808, end: 20180815
  2. ZITHROMAX [Concomitant]
     Active Substance: AZITHROMYCIN DIHYDRATE
     Indication: Nasopharyngitis
     Dosage: 250 MG
     Route: 048
     Dates: start: 20180730, end: 20180801
  3. DALACIN C [CLINDAMYCIN] [Concomitant]
     Indication: Sinusitis
     Dosage: 300 MG, TID
     Route: 048
     Dates: start: 20180816, end: 20180820

REACTIONS (19)
  - Iris atrophy [Not Recovered/Not Resolved]
  - Anterior chamber disorder [None]
  - Pupillary reflex impaired [Not Recovered/Not Resolved]
  - Mydriasis [Recovered/Resolved with Sequelae]
  - Conjunctival hyperaemia [Recovered/Resolved]
  - Photophobia [Recovered/Resolved with Sequelae]
  - Corneal disorder [None]
  - Abnormal sensation in eye [Not Recovered/Not Resolved]
  - Drug ineffective [None]
  - Headache [Recovered/Resolved]
  - Eye oedema [None]
  - Loss of personal independence in daily activities [Not Recovered/Not Resolved]
  - Fatigue [Not Recovered/Not Resolved]
  - Initial insomnia [Not Recovered/Not Resolved]
  - Dizziness [Not Recovered/Not Resolved]
  - Depressed mood [Not Recovered/Not Resolved]
  - Mental disorder [Not Recovered/Not Resolved]
  - Uveitis [None]
  - Eye pain [None]

NARRATIVE: CASE EVENT DATE: 20180820
